FAERS Safety Report 25347412 (Version 1)
Quarter: 2025Q2

REPORT INFORMATION
  Report Type: Spontaneous
  Country: GB (occurrence: GB)
  Receive Date: 20250522
  Receipt Date: 20250522
  Transmission Date: 20250716
  Serious: Yes (Other)
  Sender: MYLAN
  Company Number: GB-MHRA-MIDB- f0e7076a-a2a4-474a-91db-e08a0c09957f

PATIENT
  Age: 72 Year
  Sex: Male

DRUGS (22)
  1. MIRTAZAPINE [Suspect]
     Active Substance: MIRTAZAPINE
     Indication: Product used for unknown indication
  2. MIRTAZAPINE [Suspect]
     Active Substance: MIRTAZAPINE
  3. MIRTAZAPINE [Suspect]
     Active Substance: MIRTAZAPINE
     Route: 065
  4. MIRTAZAPINE [Suspect]
     Active Substance: MIRTAZAPINE
     Route: 065
  5. MIRTAZAPINE [Suspect]
     Active Substance: MIRTAZAPINE
  6. MIRTAZAPINE [Suspect]
     Active Substance: MIRTAZAPINE
  7. MIRTAZAPINE [Suspect]
     Active Substance: MIRTAZAPINE
     Route: 065
  8. MIRTAZAPINE [Suspect]
     Active Substance: MIRTAZAPINE
     Route: 065
  9. BECLOMETHASONE DIPROPIONATE [Concomitant]
     Active Substance: BECLOMETHASONE DIPROPIONATE
     Dosage: 2 DOSAGE FORM, BID (100 MICROGRAMS / DOSE INHALER TWO PUFFS TO BE INHALED TWICE A DAY)
     Route: 055
  10. BECLOMETHASONE DIPROPIONATE [Concomitant]
     Active Substance: BECLOMETHASONE DIPROPIONATE
     Dosage: 2 DOSAGE FORM, BID (100 MICROGRAMS / DOSE INHALER TWO PUFFS TO BE INHALED TWICE A DAY)
  11. CLONAZEPAM [Concomitant]
     Active Substance: CLONAZEPAM
     Dosage: 1 MILLIGRAM, BID (WAS TAKING 1/2 A TABLET BD -DISCONTINUED AS NOT REQUIRED)
  12. CLONAZEPAM [Concomitant]
     Active Substance: CLONAZEPAM
     Dosage: 1 MILLIGRAM, BID (WAS TAKING 1/2 A TABLET BD -DISCONTINUED AS NOT REQUIRED)
     Route: 065
  13. CLONAZEPAM [Concomitant]
     Active Substance: CLONAZEPAM
     Dosage: 1 MILLIGRAM, BID (WAS TAKING 1/2 A TABLET BD -DISCONTINUED AS NOT REQUIRED)
     Route: 065
  14. CLONAZEPAM [Concomitant]
     Active Substance: CLONAZEPAM
     Dosage: 1 MILLIGRAM, BID (WAS TAKING 1/2 A TABLET BD -DISCONTINUED AS NOT REQUIRED)
  15. CLOMIPRAMINE [Concomitant]
     Active Substance: CLOMIPRAMINE
     Dosage: 50 MILLIGRAM, PM (ONE TO BE TAKEN AT NIGHT)
     Dates: start: 20241204
  16. CLOMIPRAMINE [Concomitant]
     Active Substance: CLOMIPRAMINE
     Dosage: 50 MILLIGRAM, PM (ONE TO BE TAKEN AT NIGHT)
     Route: 065
     Dates: start: 20241204
  17. CLOMIPRAMINE [Concomitant]
     Active Substance: CLOMIPRAMINE
     Dosage: 50 MILLIGRAM, PM (ONE TO BE TAKEN AT NIGHT)
     Route: 065
     Dates: start: 20241204
  18. CLOMIPRAMINE [Concomitant]
     Active Substance: CLOMIPRAMINE
     Dosage: 50 MILLIGRAM, PM (ONE TO BE TAKEN AT NIGHT)
     Dates: start: 20241204
  19. ALBUTEROL [Concomitant]
     Active Substance: ALBUTEROL
  20. ALBUTEROL [Concomitant]
     Active Substance: ALBUTEROL
     Route: 055
  21. ALBUTEROL [Concomitant]
     Active Substance: ALBUTEROL
     Route: 055
  22. ALBUTEROL [Concomitant]
     Active Substance: ALBUTEROL

REACTIONS (2)
  - Hallucination [Not Recovered/Not Resolved]
  - Orthostatic hypotension [Unknown]
